FAERS Safety Report 5442781-4 (Version None)
Quarter: 2007Q3

REPORT INFORMATION
  Report Type: 
  Country: None (occurrence: None)
  Receive Date: 20070904
  Receipt Date: 20070820
  Transmission Date: 20080115
  Serious: No
  Sender: FDA-Public Use
  Company Number: US-BOEHRINGER INGELHEIM PHARMACEUTICALS, INC.-2007-BP-19849BP

PATIENT
  Sex: Female

DRUGS (1)
  1. MIRAPEX [Suspect]

REACTIONS (4)
  - DRUG INEFFECTIVE [None]
  - DYSPHONIA [None]
  - FLANK PAIN [None]
  - POOR QUALITY SLEEP [None]
